FAERS Safety Report 23448306 (Version 8)
Quarter: 2024Q2

REPORT INFORMATION
  Report Type: Spontaneous
  Country: HU (occurrence: HU)
  Receive Date: 20240127
  Receipt Date: 20240627
  Transmission Date: 20240716
  Serious: Yes (Death, Hospitalization, Other)
  Sender: FDA-Public Use
  Company Number: HU-CELLTRION INC.-2022HU016615

PATIENT

DRUGS (47)
  1. RITUXIMAB [Suspect]
     Active Substance: RITUXIMAB
     Indication: Diffuse large B-cell lymphoma stage IV
     Dosage: UNK
     Dates: start: 20210527, end: 20210819
  2. RITUXIMAB [Suspect]
     Active Substance: RITUXIMAB
     Dosage: UNK
     Dates: start: 20220303, end: 20220518
  3. RITUXIMAB [Suspect]
     Active Substance: RITUXIMAB
     Dosage: 375 MG/M2, 1Q2W / REGIMEN 1 DOSE DELAYED/375 MILLIGRAM/SQ. METER, 1Q2W,
     Route: 042
     Dates: start: 20220711, end: 20220711
  4. RITUXIMAB [Suspect]
     Active Substance: RITUXIMAB
     Dosage: 375 MG/M2, 1Q2W / REGIMEN 1 DOSE DELAYED/ 1Q2W
     Route: 042
     Dates: start: 20220808, end: 20220822
  5. RITUXIMAB [Suspect]
     Active Substance: RITUXIMAB
     Dosage: 375 MG/M2, 1Q2W
     Route: 042
     Dates: start: 20220808
  6. RITUXIMAB [Suspect]
     Active Substance: RITUXIMAB
     Dosage: 1Q2W/REGIMEN 1 DOSE DELAYED
     Dates: start: 20221024
  7. OXALIPLATIN [Suspect]
     Active Substance: OXALIPLATIN
     Indication: Diffuse large B-cell lymphoma stage IV
     Dosage: 1000 MG/M2 (ADDITIONAL INFORMATION ON DRUG: REGIMEN 1 DOSE DELAYED), 1Q2W
     Route: 042
     Dates: start: 20220712, end: 20220712
  8. OXALIPLATIN [Suspect]
     Active Substance: OXALIPLATIN
     Dosage: 100 MG/M2, 1Q2W
     Route: 042
     Dates: start: 20220809, end: 20220823
  9. OXALIPLATIN [Suspect]
     Active Substance: OXALIPLATIN
     Dosage: 100 MG/M2, 1Q2W
     Route: 042
     Dates: start: 20220712, end: 20220712
  10. OXALIPLATIN [Suspect]
     Active Substance: OXALIPLATIN
     Dosage: 100 MG/M2, 1Q2W
     Route: 042
     Dates: start: 20220809
  11. OXALIPLATIN [Suspect]
     Active Substance: OXALIPLATIN
     Dosage: 1Q2W/REGIMEN 1 DOSE DELAYED
     Dates: start: 20221025
  12. GEMCITABINE [Suspect]
     Active Substance: GEMCITABINE
     Indication: Diffuse large B-cell lymphoma stage IV
     Dosage: 1000 MG/M2, 1Q2W / REGIMEN 1 DOSE DELAYED/1Q2W
     Route: 042
     Dates: start: 20220712, end: 20220712
  13. GEMCITABINE [Suspect]
     Active Substance: GEMCITABINE
     Dosage: 750 MG/M2, 1Q2W /REGIMEN 1 DOSE DELAYED/1Q2W
     Route: 042
     Dates: start: 20220809, end: 20220823
  14. GEMCITABINE [Suspect]
     Active Substance: GEMCITABINE
     Dosage: REGIMEN 1 DOSE DELAYED/1Q2W
     Dates: start: 20221025
  15. FEBUXOSTAT [Concomitant]
     Active Substance: FEBUXOSTAT
     Dosage: UNK
     Dates: start: 20220711
  16. BISOPROLOL [Concomitant]
     Active Substance: BISOPROLOL\BISOPROLOL FUMARATE
     Dosage: UNK
     Dates: start: 202202
  17. PANTOPRAZOLE [Concomitant]
     Active Substance: PANTOPRAZOLE
     Dosage: UNK
     Dates: start: 20220622
  18. PANTOPRAZOLE [Concomitant]
     Active Substance: PANTOPRAZOLE
     Dosage: UNK
  19. CHLOROPYRAMINE HYDROCHLORIDE [Concomitant]
     Active Substance: CHLOROPYRAMINE HYDROCHLORIDE
     Dosage: UNK
     Dates: start: 20220711, end: 20220711
  20. CHLOROPYRAMINE HYDROCHLORIDE [Concomitant]
     Active Substance: CHLOROPYRAMINE HYDROCHLORIDE
     Dosage: UNK
     Dates: start: 20220808, end: 20220808
  21. FILGRASTIM [Concomitant]
     Active Substance: FILGRASTIM
     Dosage: UNK
     Dates: start: 20220816, end: 20220904
  22. FILGRASTIM [Concomitant]
     Active Substance: FILGRASTIM
     Dosage: 48 M [IU]
  23. FILGRASTIM [Concomitant]
     Active Substance: FILGRASTIM
     Dosage: UNK
     Dates: start: 20220816, end: 20220816
  24. CHLOROPYRAMINE [Concomitant]
     Active Substance: CHLOROPYRAMINE
     Dosage: UNK
  25. CHLOROPYRAMINE [Concomitant]
     Active Substance: CHLOROPYRAMINE
     Dosage: UNK
     Dates: start: 20220822, end: 20220822
  26. ACETAMINOPHEN [Concomitant]
     Active Substance: ACETAMINOPHEN
     Dosage: UNK
     Dates: start: 20220711, end: 20220711
  27. ACETAMINOPHEN [Concomitant]
     Active Substance: ACETAMINOPHEN
     Dosage: UNK
     Dates: start: 20220808, end: 20220822
  28. ONDANSETRON HYDROCHLORIDE [Concomitant]
     Active Substance: ONDANSETRON HYDROCHLORIDE
     Dosage: UNK
     Dates: start: 20220712, end: 20220712
  29. ONDANSETRON HYDROCHLORIDE [Concomitant]
     Active Substance: ONDANSETRON HYDROCHLORIDE
     Dosage: UNK
     Dates: start: 20220809, end: 20220809
  30. MEROPENEM [Concomitant]
     Active Substance: MEROPENEM
     Dosage: 1 G
  31. FUROSEMIDE [Concomitant]
     Active Substance: FUROSEMIDE
     Dosage: UNK
     Dates: start: 20220829, end: 20220910
  32. RINGERS SOLUTION [Concomitant]
     Active Substance: CALCIUM CHLORIDE\POTASSIUM CHLORIDE\SODIUM CHLORIDE
     Dosage: UNK
  33. RINGERS SOLUTION [Concomitant]
     Active Substance: CALCIUM CHLORIDE\POTASSIUM CHLORIDE\SODIUM CHLORIDE
     Dosage: UNK
     Dates: start: 20220828, end: 20220911
  34. PAXIRASOL [Concomitant]
     Dosage: UNK
     Dates: start: 20220906, end: 20220913
  35. SODIUM CHLORIDE [Concomitant]
     Active Substance: SODIUM CHLORIDE
     Dosage: UNK
     Dates: start: 20220711, end: 20220728
  36. SOLU-MEDROL [Concomitant]
     Active Substance: METHYLPREDNISOLONE SODIUM SUCCINATE
     Indication: Premedication
     Dosage: UNK
     Dates: start: 20220711, end: 20220711
  37. FUROSEMIDE [Concomitant]
     Active Substance: FUROSEMIDE
     Dosage: UNK
     Dates: start: 20220711, end: 20220728
  38. MEDROL [Concomitant]
     Active Substance: METHYLPREDNISOLONE
     Dosage: UNK
     Dates: start: 20220622, end: 20220710
  39. MEDROL [Concomitant]
     Active Substance: METHYLPREDNISOLONE
     Dosage: UNK
     Dates: start: 20220622, end: 20220714
  40. POTASSIUM CHLORIDE [Concomitant]
     Active Substance: POTASSIUM CHLORIDE
     Dosage: UNK
     Dates: start: 20220713, end: 20220728
  41. VANCOMYCIN HYDROCHLORIDE [Concomitant]
     Active Substance: VANCOMYCIN HYDROCHLORIDE
     Dosage: UNK
     Dates: start: 20220716, end: 20220728
  42. VANCOMYCIN HYDROCHLORIDE [Concomitant]
     Active Substance: VANCOMYCIN HYDROCHLORIDE
     Dosage: UNK
     Dates: start: 20220831, end: 20220906
  43. SODIUM BICARBONATE [Concomitant]
     Active Substance: SODIUM BICARBONATE
     Dosage: 8.4 PERCENT
     Dates: start: 20220711, end: 20220713
  44. MEROPENEM [Concomitant]
     Active Substance: MEROPENEM
     Dosage: UNK
     Dates: start: 20220722, end: 20220728
  45. RINGER [CALCIUM CHLORIDE DIHYDRATE;POTASSIUM CHLORIDE] [Concomitant]
     Dosage: UNK
     Dates: start: 20220711, end: 20220728
  46. RINGER [CALCIUM CHLORIDE DIHYDRATE;POTASSIUM CHLORIDE] [Concomitant]
     Dosage: UNK
     Dates: start: 20220828, end: 20220911
  47. FILGRASTIM [Concomitant]
     Active Substance: FILGRASTIM
     Dosage: ADDITIONAL INFORMATION ON DRUG (FREE TEXT): ACCOFIL
     Dates: start: 20220816, end: 20220816

REACTIONS (5)
  - Disease progression [Fatal]
  - Febrile neutropenia [Recovered/Resolved]
  - Febrile neutropenia [Recovered/Resolved]
  - Neutropenia [Not Recovered/Not Resolved]
  - Off label use [Unknown]

NARRATIVE: CASE EVENT DATE: 20220713
